FAERS Safety Report 4851777-2 (Version None)
Quarter: 2005Q4

REPORT INFORMATION
  Report Type: 
  Country: None (occurrence: None)
  Receive Date: 20051209
  Receipt Date: 20051124
  Transmission Date: 20060501
  Serious: Yes (Other)
  Sender: FDA-Public Use
  Company Number: 12928

PATIENT
  Age: 41 Year
  Sex: Male
  Weight: 41 kg

DRUGS (5)
  1. CARBOPLATIN [Suspect]
     Dosage: 465 PER_CYCLE IV
     Route: 042
     Dates: start: 20041222, end: 20041222
  2. TAXOTERE [Suspect]
     Dosage: 100 MG PER_CYCLE IV
     Route: 042
     Dates: start: 20041222, end: 20041222
  3. NAVOBAN [Concomitant]
  4. DEXAMETHASONE [Concomitant]
  5. LARGACTIL [Concomitant]

REACTIONS (2)
  - INFUSION RELATED REACTION [None]
  - PHLEBITIS [None]
